FAERS Safety Report 21356778 (Version 1)
Quarter: 2022Q3

REPORT INFORMATION
  Report Type: Report from Study
  Country: US (occurrence: None)
  Receive Date: 20220920
  Receipt Date: 20220920
  Transmission Date: 20221027
  Serious: Yes (Hospitalization)
  Sender: FDA-Public Use
  Company Number: 2022A289462

PATIENT
  Age: 49 Year
  Sex: Female

DRUGS (1)
  1. LYNPARZA [Suspect]
     Active Substance: OLAPARIB
     Indication: Fallopian tube cancer
     Route: 048
     Dates: start: 20220509

REACTIONS (3)
  - Small intestinal obstruction [Unknown]
  - Abdominal pain [Not Recovered/Not Resolved]
  - Blood urea increased [Not Recovered/Not Resolved]

NARRATIVE: CASE EVENT DATE: 20220825
